FAERS Safety Report 9183160 (Version 1)
Quarter: 2012Q4

REPORT INFORMATION
  Report Type: 
  Country: US (occurrence: US)
  Receive Date: 20121030
  Receipt Date: 20121030
  Transmission Date: 20130627
  Serious: Yes (Other)
  Sender: FDA-Public Use
  Company Number: US-JNJFOC-20121011296

PATIENT
  Age: 25 Year
  Sex: Male

DRUGS (1)
  1. GOLIMUMAB [Suspect]
     Indication: ANKYLOSING SPONDYLITIS
     Route: 058
     Dates: start: 201103

REACTIONS (1)
  - Inflammatory bowel disease [Recovering/Resolving]
